FAERS Safety Report 21629982 (Version 8)
Quarter: 2023Q2

REPORT INFORMATION
  Report Type: Spontaneous
  Country: US (occurrence: US)
  Receive Date: 20221122
  Receipt Date: 20230609
  Transmission Date: 20230722
  Serious: Yes (Other)
  Sender: FDA-Public Use
  Company Number: US-PFIZER INC-PV202200106164

PATIENT
  Age: 74 Year
  Sex: Female

DRUGS (1)
  1. IBRANCE [Suspect]
     Active Substance: PALBOCICLIB
     Dosage: 100 MG, DAILY FOR 21 DAYS
     Dates: start: 20221120

REACTIONS (11)
  - Pulmonary congestion [Unknown]
  - Vomiting [Unknown]
  - Nausea [Recovering/Resolving]
  - Constipation [Unknown]
  - Diarrhoea [Unknown]
  - Fatigue [Unknown]
  - Alopecia [Unknown]
  - Arthralgia [Unknown]
  - Productive cough [Unknown]
  - Secretion discharge [Unknown]
  - Wheezing [Unknown]

NARRATIVE: CASE EVENT DATE: 20221121
